FAERS Safety Report 18653931 (Version 1)
Quarter: 2020Q4

REPORT INFORMATION
  Report Type: Spontaneous
  Country: US (occurrence: US)
  Receive Date: 20201223
  Receipt Date: 20201223
  Transmission Date: 20210114
  Serious: No
  Sender: FDA-Public Use
  Company Number: US-SA-2020SA367755

PATIENT

DRUGS (2)
  1. DUPIXENT [Suspect]
     Active Substance: DUPILUMAB
     Dosage: UNK, QOW
     Dates: start: 20201217
  2. DUPIXENT [Suspect]
     Active Substance: DUPILUMAB
     Indication: NASAL POLYPS
     Dosage: 300 MG, FREQUENCY OTHER
     Route: 058
     Dates: start: 20201202

REACTIONS (8)
  - Ocular hyperaemia [Recovered/Resolved]
  - Pruritus [Unknown]
  - Rash [Unknown]
  - Eye pruritus [Unknown]
  - Injection site discolouration [Unknown]
  - Asthenopia [Unknown]
  - Headache [Not Recovered/Not Resolved]
  - Migraine [Unknown]

NARRATIVE: CASE EVENT DATE: 202012
